FAERS Safety Report 7998571-1 (Version None)
Quarter: 2011Q4

REPORT INFORMATION
  Report Type: 
  Country: None (occurrence: None)
  Receive Date: 20111219
  Receipt Date: 20111201
  Transmission Date: 20120403
  Serious: Yes (Other)
  Sender: FDA-Public Use
  Company Number: 2011PROUSA00820

PATIENT
  Age: 73 Year
  Sex: Male
  Weight: 68.4932 kg

DRUGS (3)
  1. DENOSUMAB (DENOSUMAB) [Concomitant]
  2. AMBIEN CR [Concomitant]
  3. PROVENGE [Suspect]
     Indication: PROSTATE CANCER METASTATIC
     Dosage: 250 ML, SINGLE, INTRAVENOUS
     Route: 042
     Dates: start: 20111117, end: 20111117

REACTIONS (5)
  - FALL [None]
  - DIZZINESS [None]
  - DEHYDRATION [None]
  - ABDOMINAL DISCOMFORT [None]
  - NAUSEA [None]
